FAERS Safety Report 25523044 (Version 1)
Quarter: 2025Q3

REPORT INFORMATION
  Report Type: Spontaneous
  Country: VE (occurrence: VE)
  Receive Date: 20250707
  Receipt Date: 20250707
  Transmission Date: 20251021
  Serious: Yes (Hospitalization, Other)
  Sender: NOVARTIS
  Company Number: VE-002147023-NVSC2025VE039524

PATIENT
  Sex: Female

DRUGS (1)
  1. GLIVEC [Suspect]
     Active Substance: IMATINIB MESYLATE
     Indication: Chronic myeloid leukaemia
     Route: 065

REACTIONS (4)
  - Urinary tract infection [Unknown]
  - Nephropathy toxic [Unknown]
  - Glomerular filtration rate increased [Unknown]
  - Albuminuria [Unknown]
